FAERS Safety Report 7532526-6 (Version None)
Quarter: 2011Q2

REPORT INFORMATION
  Report Type: 
  Country: None (occurrence: None)
  Receive Date: 20110608
  Receipt Date: 20110526
  Transmission Date: 20111010
  Serious: Yes (Hospitalization)
  Sender: FDA-Public Use
  Company Number: PHHY2011AR46251

PATIENT
  Sex: Male

DRUGS (1)
  1. EXELON [Suspect]
     Indication: MENTAL DISORDER
     Dosage: 1 DF, QD
     Route: 048
     Dates: end: 20110520

REACTIONS (3)
  - DYSPNOEA [None]
  - CARDIAC DISORDER [None]
  - GAIT DISTURBANCE [None]
